FAERS Safety Report 8201092-4 (Version None)
Quarter: 2012Q1

REPORT INFORMATION
  Report Type: 
  Country: None (occurrence: None)
  Receive Date: 20120312
  Receipt Date: 20111212
  Transmission Date: 20120608
  Serious: No
  Sender: FDA-Public Use
  Company Number: US-ABBOTT-11P-163-0883306-00

PATIENT
  Sex: Female
  Weight: 65.83 kg

DRUGS (3)
  1. LUPRON DEPOT [Suspect]
     Dates: start: 20111215
  2. PROBIOTIC [Concomitant]
     Indication: SUPPLEMENTATION THERAPY
  3. LUPRON DEPOT [Suspect]
     Indication: DYSMENORRHOEA
     Dates: start: 20110901, end: 20111215

REACTIONS (3)
  - ACNE [None]
  - DYSMENORRHOEA [None]
  - IRRITABLE BOWEL SYNDROME [None]
